FAERS Safety Report 5610425-4 (Version None)
Quarter: 2008Q1

REPORT INFORMATION
  Report Type: 
  Country: None (occurrence: None)
  Receive Date: 20080128
  Receipt Date: 20080116
  Transmission Date: 20080703
  Serious: Yes (Hospitalization, Other)
  Sender: FDA-Public Use
  Company Number: 230586J08USA

PATIENT
  Age: 64 Year
  Sex: Female
  Weight: 81.6475 kg

DRUGS (4)
  1. REBIF [Suspect]
     Indication: MULTIPLE SCLEROSIS
     Dosage: 44 MCG, 3 IN 1 WEEKS, SUBCUTANEOUS
     Route: 058
     Dates: start: 20061129, end: 20071201
  2. TAMOXIFEN (TAMOXIFEN /00388701/) [Concomitant]
  3. ATENOLOL [Concomitant]
  4. IMIPRAMINE (IMIPRAMINE /00053901/) [Concomitant]

REACTIONS (1)
  - PANCREATIC CARCINOMA [None]
